FAERS Safety Report 4855763-8 (Version None)
Quarter: 2005Q4

REPORT INFORMATION
  Report Type: 
  Country: None (occurrence: None)
  Receive Date: 20051215
  Receipt Date: 20051215
  Transmission Date: 20060501
  Serious: Yes (Other)
  Sender: FDA-Public Use
  Company Number: None

PATIENT
  Age: 49 Year
  Sex: Female
  Weight: 83.9154 kg

DRUGS (1)
  1. FLUCONAZOLE [Suspect]
     Indication: VAGINAL CANDIDIASIS
     Dosage: ONE PILL ONE TIME PO
     Route: 048
     Dates: start: 20051205, end: 20051205

REACTIONS (2)
  - DRUG INEFFECTIVE [None]
  - PHARMACEUTICAL PRODUCT COMPLAINT [None]
